FAERS Safety Report 8880954 (Version 3)
Quarter: 2013Q2

REPORT INFORMATION
  Report Type: Spontaneous
  Country: JP (occurrence: JP)
  Receive Date: 20121101
  Receipt Date: 20130415
  Transmission Date: 20140414
  Serious: Yes (Other)
  Sender: FDA-Public Use
  Company Number: JP-PFIZER INC-2012267056

PATIENT
  Age: 54 Year
  Sex: Female

DRUGS (3)
  1. GEMCITABINE HYDROCHLORIDE [Suspect]
     Indication: BREAST CANCER
     Dosage: UNK
  2. WARFARIN [Interacting]
     Indication: PULMONARY EMBOLISM
  3. MEDROXYPROGESTERONE ACETATE [Concomitant]

REACTIONS (4)
  - Drug interaction [Recovered/Resolved]
  - Intra-abdominal haemorrhage [Recovered/Resolved]
  - Melaena [Recovered/Resolved]
  - International normalised ratio increased [Recovered/Resolved]
